FAERS Safety Report 6484139-5 (Version None)
Quarter: 2009Q4

REPORT INFORMATION
  Report Type: 
  Country: None (occurrence: None)
  Receive Date: 20091209
  Receipt Date: 20090519
  Transmission Date: 20100525
  Serious: No
  Sender: FDA-Public Use
  Company Number: US-AMGEN-KDL347925

PATIENT
  Sex: Female

DRUGS (2)
  1. ENBREL [Suspect]
     Indication: RHEUMATOID ARTHRITIS
     Route: 058
  2. ARAVA [Concomitant]
     Route: 048

REACTIONS (7)
  - COUGH [None]
  - LACRIMATION INCREASED [None]
  - MALAISE [None]
  - PAIN IN EXTREMITY [None]
  - RESPIRATORY TRACT CONGESTION [None]
  - RHINORRHOEA [None]
  - SNEEZING [None]
